FAERS Safety Report 24105141 (Version 1)
Quarter: 2024Q3

REPORT INFORMATION
  Report Type: Spontaneous
  Country: GB (occurrence: GB)
  Receive Date: 20240717
  Receipt Date: 20240717
  Transmission Date: 20241017
  Serious: Yes (Other)
  Sender: TEVA
  Company Number: None

PATIENT
  Age: 50 Year
  Sex: Female
  Weight: 51 kg

DRUGS (1)
  1. NAPROXEN [Suspect]
     Active Substance: NAPROXEN
     Indication: Adverse drug reaction
     Dosage: 500MG
     Route: 065
     Dates: start: 20240617, end: 20240706

REACTIONS (3)
  - Medication error [Unknown]
  - Myalgia [Not Recovered/Not Resolved]
  - Anal haemorrhage [Recovering/Resolving]
